FAERS Safety Report 4815350-4 (Version None)
Quarter: 2005Q4

REPORT INFORMATION
  Report Type: 
  Country: None (occurrence: None)
  Receive Date: 20051027
  Receipt Date: 20051019
  Transmission Date: 20060501
  Serious: Yes (Hospitalization)
  Sender: FDA-Public Use
  Company Number: 163-20785-05080158

PATIENT
  Age: 76 Year
  Sex: Female

DRUGS (3)
  1. THALOMID [Suspect]
     Indication: MULTIPLE MYELOMA
     Dosage: 150 MG, DAILY, ORAL
     Route: 048
     Dates: start: 20020123
  2. NEURONTIN [Concomitant]
  3. COUMADIN [Concomitant]

REACTIONS (3)
  - ANAEMIA [None]
  - CARDIAC DISORDER [None]
  - RENAL FAILURE [None]
